FAERS Safety Report 24155191 (Version 3)
Quarter: 2024Q3

REPORT INFORMATION
  Report Type: Report from Study
  Country: CA (occurrence: CA)
  Receive Date: 20240731
  Receipt Date: 20240904
  Transmission Date: 20241017
  Serious: Yes (Hospitalization)
  Sender: ABBVIE
  Company Number: CA-ABBVIE-5857062

PATIENT
  Age: 37 Year
  Sex: Female

DRUGS (2)
  1. RINVOQ [Suspect]
     Active Substance: UPADACITINIB
     Indication: Ankylosing spondylitis
     Dosage: FORM STRENGTH: 15 MILLIGRAM
     Route: 048
     Dates: start: 20221005
  2. AMOXICILLIN [Concomitant]
     Active Substance: AMOXICILLIN
     Indication: Product used for unknown indication
     Route: 048
     Dates: end: 20240729

REACTIONS (13)
  - Abdominal pain [Not Recovered/Not Resolved]
  - Pain [Unknown]
  - Mucous stools [Unknown]
  - Food poisoning [Unknown]
  - Nausea [Recovered/Resolved]
  - Vomiting [Recovered/Resolved]
  - Faeces discoloured [Unknown]
  - Diarrhoea [Recovered/Resolved]
  - Muscle spasms [Unknown]
  - Gallbladder disorder [Unknown]
  - Ulcer [Unknown]
  - Listeriosis [Unknown]
  - Constipation [Unknown]

NARRATIVE: CASE EVENT DATE: 20240101
